FAERS Safety Report 7354646-1 (Version None)
Quarter: 2011Q1

REPORT INFORMATION
  Report Type: 
  Country: None (occurrence: None)
  Receive Date: 20110316
  Receipt Date: 20110222
  Transmission Date: 20110831
  Serious: No
  Sender: FDA-Public Use
  Company Number: US-PFIZER INC-2011039004

PATIENT
  Sex: Female
  Weight: 70.2 kg

DRUGS (1)
  1. ADVIL PM [Suspect]
     Dosage: 1 DF
     Route: 048
     Dates: start: 20100101

REACTIONS (4)
  - INSOMNIA [None]
  - NERVOUSNESS [None]
  - AGITATION [None]
  - RESTLESSNESS [None]
